FAERS Safety Report 5385681-0 (Version None)
Quarter: 2007Q3

REPORT INFORMATION
  Report Type: 
  Country: None (occurrence: None)
  Receive Date: 20070712
  Receipt Date: 20070702
  Transmission Date: 20080115
  Serious: Yes (Other)
  Sender: FDA-Public Use
  Company Number: US-PFIZER INC-2007055755

PATIENT
  Sex: Female
  Weight: 44.545 kg

DRUGS (6)
  1. CHANTIX [Suspect]
     Indication: SMOKING CESSATION THERAPY
  2. TRAMADOL HCL [Concomitant]
  3. TRAZODONE HCL [Concomitant]
  4. COZAAR [Concomitant]
  5. OXYGEN [Concomitant]
  6. OTHER RESPIRATORY SYSTEM PRODUCTS [Concomitant]

REACTIONS (9)
  - ABDOMINAL PAIN [None]
  - DIZZINESS [None]
  - DYSPEPSIA [None]
  - FATIGUE [None]
  - MALAISE [None]
  - NAUSEA [None]
  - NERVOUSNESS [None]
  - RETCHING [None]
  - VOMITING [None]
